FAERS Safety Report 4848781-7 (Version None)
Quarter: 2005Q4

REPORT INFORMATION
  Report Type: 
  Country: None (occurrence: None)
  Receive Date: 20051206
  Receipt Date: 20051115
  Transmission Date: 20060501
  Serious: Yes (Hospitalization)
  Sender: FDA-Public Use
  Company Number: ZA200511001304

PATIENT
  Age: 8 Year
  Sex: Male

DRUGS (3)
  1. STRATTERA [Suspect]
     Indication: ATTENTION DEFICIT/HYPERACTIVITY DISORDER
     Dosage: 18 MG, DAILY (1/D), ORAL
     Route: 048
     Dates: start: 20051001, end: 20051020
  2. EPILIM (VALPROATE SODIUM) [Concomitant]
  3. RITALIN [Concomitant]

REACTIONS (2)
  - DISINHIBITION [None]
  - MANIA [None]
